FAERS Safety Report 9975142 (Version 1)
Quarter: 2014Q1

REPORT INFORMATION
  Report Type: Report from Study
  Country: US (occurrence: US)
  Receive Date: 20140306
  Receipt Date: 20140306
  Transmission Date: 20141002
  Serious: No
  Sender: FDA-Public Use
  Company Number: US-ABBVIE-13P-163-1161382-00

PATIENT
  Sex: Male

DRUGS (5)
  1. HUMIRA [Suspect]
     Indication: PSORIASIS
     Dates: start: 20131001, end: 20131001
  2. HUMIRA [Suspect]
     Dates: start: 20131008
  3. FENOFIBRATE [Concomitant]
     Indication: BLOOD TRIGLYCERIDES INCREASED
  4. DILTIAZEM [Concomitant]
     Indication: HYPERTENSION
  5. PROPANOL [Concomitant]
     Indication: HEADACHE

REACTIONS (3)
  - Medication error [Unknown]
  - Psoriasis [Not Recovered/Not Resolved]
  - Emotional disorder [Not Recovered/Not Resolved]
